FAERS Safety Report 9094634 (Version 5)
Quarter: 2013Q3

REPORT INFORMATION
  Report Type: Spontaneous
  Country: US (occurrence: US)
  Receive Date: 20130219
  Receipt Date: 20130904
  Transmission Date: 20140515
  Serious: Yes (Hospitalization, Other)
  Sender: FDA-Public Use
  Company Number: US-PFIZER INC-2013061573

PATIENT
  Age: 80 Year
  Sex: Female
  Weight: 56.69 kg

DRUGS (8)
  1. LIPITOR [Suspect]
     Indication: CARDIAC DISORDER
     Dosage: 40 MG DAILY
  2. LIPITOR [Suspect]
     Indication: HYPERTENSION
  3. IBUPROFEN [Suspect]
     Indication: TEMPOROMANDIBULAR JOINT SYNDROME
     Dosage: UNK
     Route: 065
     Dates: start: 201209, end: 2012
  4. IBUPROFEN [Suspect]
     Indication: INFLAMMATION
  5. IBUPROFEN [Suspect]
     Indication: INFLAMMATORY PAIN
  6. PLAVIX [Suspect]
     Dosage: 75 MG DAILY
     Dates: start: 2012, end: 2012
  7. METFORMIN [Concomitant]
     Indication: DIABETES MELLITUS
     Dosage: 500 MG, 2X/DAY
  8. HYDROCHLOROTHIAZIDE, TRIAMTERENE [Concomitant]
     Indication: CARDIAC DISORDER
     Dosage: ^37.5 MG^ (AS REPORTED) DAILY

REACTIONS (6)
  - Gastrointestinal haemorrhage [Unknown]
  - Pancreatitis acute [Unknown]
  - Vomiting [Unknown]
  - Drug ineffective [Unknown]
  - Nausea [Unknown]
  - Weight fluctuation [Unknown]
